FAERS Safety Report 5072973-8 (Version None)
Quarter: 2006Q3

REPORT INFORMATION
  Report Type: 
  Country: None (occurrence: None)
  Receive Date: 20060802
  Receipt Date: 20060721
  Transmission Date: 20061208
  Serious: Yes (Hospitalization)
  Sender: FDA-Public Use
  Company Number: IL-2006-015396

PATIENT
  Age: 48 Year
  Sex: Female
  Weight: 61 kg

DRUGS (2)
  1. BETASERON [Suspect]
     Indication: RELAPSING-REMITTING MULTIPLE SCLEROSIS
     Dosage: 8 OR 16 MUI , EVERY 2 D, SUBCUTANEOUS
     Route: 058
     Dates: start: 20060308
  2. COPAXONE [Suspect]

REACTIONS (9)
  - ALANINE AMINOTRANSFERASE INCREASED [None]
  - ASPARTATE AMINOTRANSFERASE INCREASED [None]
  - BLOOD CHOLESTEROL INCREASED [None]
  - BLOOD LACTATE DEHYDROGENASE INCREASED [None]
  - BLOOD THYROID STIMULATING HORMONE INCREASED [None]
  - CHOLECYSTITIS ACUTE [None]
  - CHOLELITHIASIS [None]
  - LOW DENSITY LIPOPROTEIN INCREASED [None]
  - THYROXINE FREE INCREASED [None]
